FAERS Safety Report 8329590 (Version 2)
Quarter: 2013Q3

REPORT INFORMATION
  Report Type: Spontaneous
  Country: FR (occurrence: FR)
  Receive Date: 20120110
  Receipt Date: 20130823
  Transmission Date: 20140515
  Serious: Yes (Life-Threatening, Hospitalization)
  Sender: FDA-Public Use
  Company Number: PHHY2012FR001183

PATIENT
  Age: 75 Year
  Sex: Female
  Weight: 90.3 kg

DRUGS (6)
  1. GLIVEC [Suspect]
     Indication: GASTROINTESTINAL STROMAL TUMOUR
     Dosage: 400 MG
     Route: 048
  2. ATACAND [Concomitant]
     Dosage: 8 MG, QD
  3. ATACAND [Concomitant]
     Dosage: 8 MG, QD
     Dates: start: 20120102
  4. ATENOLOL [Concomitant]
     Dosage: 50 MG, QD
  5. KARDEGIC [Concomitant]
     Dosage: 75 MG, QD
  6. TAHOR [Concomitant]
     Dosage: 10 MG, QD

REACTIONS (29)
  - Peritonitis [Recovered/Resolved with Sequelae]
  - Ascites [Unknown]
  - Abdominal pain [Unknown]
  - Pneumoperitoneum [Unknown]
  - Gastric perforation [Recovered/Resolved with Sequelae]
  - Lung disorder [Unknown]
  - Hepatic steatosis [Unknown]
  - Livedo reticularis [Unknown]
  - Hiatus hernia [Unknown]
  - Gastrointestinal fistula [Unknown]
  - Breath sounds abnormal [Unknown]
  - Retroperitoneal abscess [Unknown]
  - Oesophagitis ulcerative [Unknown]
  - Thyroid disorder [Unknown]
  - Gastrointestinal necrosis [Unknown]
  - Laryngeal dyspnoea [Unknown]
  - Depression [Unknown]
  - Multi-organ failure [Unknown]
  - Systemic inflammatory response syndrome [Not Recovered/Not Resolved]
  - General physical health deterioration [Unknown]
  - Asthenia [Unknown]
  - Metabolic acidosis [Unknown]
  - Hypotension [Unknown]
  - Renal failure acute [Unknown]
  - Septic shock [Unknown]
  - Confusional state [Unknown]
  - Pyrexia [Unknown]
  - Pleural effusion [Unknown]
  - Bundle branch block left [Unknown]
